FAERS Safety Report 9235702 (Version 2)
Quarter: 2013Q2

REPORT INFORMATION
  Report Type: Spontaneous
  Country: CN (occurrence: CN)
  Receive Date: 20130417
  Receipt Date: 20130426
  Transmission Date: 20140414
  Serious: Yes (Other)
  Sender: FDA-Public Use
  Company Number: CN-JNJFOC-20130406574

PATIENT
  Sex: 0

DRUGS (2)
  1. ITRACONAZOLE [Suspect]
     Indication: SYSTEMIC MYCOSIS
     Dosage: 7 DAYS- ONE COURSE
     Route: 041
  2. ITRACONAZOLE [Suspect]
     Indication: CENTRAL NERVOUS SYSTEM INFECTION
     Dosage: SEQUENTIAL THERAPY
     Route: 048

REACTIONS (1)
  - Liver injury [Unknown]
